FAERS Safety Report 24233808 (Version 3)
Quarter: 2024Q4

REPORT INFORMATION
  Report Type: Spontaneous
  Country: US (occurrence: US)
  Receive Date: 20240821
  Receipt Date: 20241226
  Transmission Date: 20250115
  Serious: No
  Sender: SANOFI AVENTIS
  Company Number: US-SA-SAC20240816000519

PATIENT
  Age: 9 Year
  Sex: Male

DRUGS (6)
  1. DUPIXENT [Suspect]
     Active Substance: DUPILUMAB
     Indication: Dermatitis atopic
     Dosage: 600 MG, 1X
     Route: 058
     Dates: start: 20240812, end: 20240812
  2. DUPIXENT [Suspect]
     Active Substance: DUPILUMAB
     Dosage: 300 MG, Q4W
     Route: 058
     Dates: start: 20240910
  3. AZITHROMYCIN [Concomitant]
     Active Substance: AZITHROMYCIN
  4. FLUTICASONE [Concomitant]
     Active Substance: FLUTICASONE
  5. MOMETASONE [Concomitant]
     Active Substance: MOMETASONE
  6. HYDROCORTISONE [Concomitant]
     Active Substance: HYDROCORTISONE

REACTIONS (10)
  - Injection site pain [Not Recovered/Not Resolved]
  - Product preparation error [Not Recovered/Not Resolved]
  - Pain in extremity [Not Recovered/Not Resolved]
  - Sleep disorder due to a general medical condition [Unknown]
  - Eczema [Not Recovered/Not Resolved]
  - Pruritus [Not Recovered/Not Resolved]
  - Dry skin [Not Recovered/Not Resolved]
  - Eye irritation [Not Recovered/Not Resolved]
  - Joint swelling [Not Recovered/Not Resolved]
  - Rebound eczema [Not Recovered/Not Resolved]

NARRATIVE: CASE EVENT DATE: 20240101
